FAERS Safety Report 8115170-1 (Version None)
Quarter: 2012Q1

REPORT INFORMATION
  Report Type: 
  Country: None (occurrence: None)
  Receive Date: 20120201
  Receipt Date: 20100125
  Transmission Date: 20120608
  Serious: Yes (Death)
  Sender: FDA-Public Use
  Company Number: A0963195A

PATIENT
  Age: 80 Year
  Sex: Female

DRUGS (3)
  1. FLUTICASONE+SALMETEROL MULTI DOSE POWDER INHALER (FLUTICASONE+SALMETER [Suspect]
     Indication: PRODUCT USED FOR UNKNOWN INDICATION
     Dates: start: 20100217
  2. FLUTICASONE+SALMETEROL MULTI DOSE POWDER INHALER (FLUTICASONE+SALMETER [Suspect]
     Indication: PRODUCT USED FOR UNKNOWN INDICATION
     Dates: start: 20100217
  3. DIGOXIN [Suspect]
     Indication: PRODUCT USED FOR UNKNOWN INDICATION
     Dosage: 125 MG
     Dates: start: 20100217

REACTIONS (1)
  - DEATH [None]
